FAERS Safety Report 14764620 (Version 1)
Quarter: 2018Q2

REPORT INFORMATION
  Report Type: Spontaneous
  Country: IE (occurrence: IE)
  Receive Date: 20180416
  Receipt Date: 20180416
  Transmission Date: 20180711
  Serious: Yes (Hospitalization)
  Sender: FDA-Public Use
  Company Number: IE-TEVA-2018-IE-879500

PATIENT
  Age: 71 Year
  Sex: Female

DRUGS (9)
  1. PARACETAMOL [Concomitant]
     Active Substance: ACETAMINOPHEN
     Dosage: 1G QDS PRN
  2. NICORETTE INVISI EXTRA STRENGTH 25MG/16 HOURS TRAN [Concomitant]
     Dosage: 25MG/16 HOUR PATCH = DISCONTINUED
  3. ASPIRIN EC [Concomitant]
     Active Substance: ASPIRIN
     Route: 048
  4. SPIRONOLACTONE (G) [Concomitant]
     Dosage: HELD DURING HOSPITAL ADMISSION
     Route: 048
  5. BRILIQUE [Concomitant]
     Active Substance: TICAGRELOR
     Route: 048
  6. PANTOPRAZOLE (GENERIC) [Concomitant]
     Route: 048
  7. ATORVASTATIN (GENERIC) [Suspect]
     Active Substance: ATORVASTATIN
     Dosage: COMMENCED IN AUG/2017 POST STEMI AND PCI
     Route: 048
     Dates: start: 201708
  8. BISOPROLOL (GENERIC) [Concomitant]
     Route: 048
  9. RAMIPRIL (G) [Concomitant]
     Dosage: HELD DURING HOSPITAL ADMISSION
     Route: 048

REACTIONS (6)
  - Malaise [Recovering/Resolving]
  - Acute kidney injury [Recovering/Resolving]
  - Hypovolaemia [Recovering/Resolving]
  - Rhabdomyolysis [Recovering/Resolving]
  - Acidosis [Recovering/Resolving]
  - Liver function test abnormal [Recovering/Resolving]

NARRATIVE: CASE EVENT DATE: 20180120
